FAERS Safety Report 7468089-3 (Version None)
Quarter: 2011Q2

REPORT INFORMATION
  Report Type: 
  Country: None (occurrence: None)
  Receive Date: 20110509
  Receipt Date: 20110324
  Transmission Date: 20111010
  Serious: Yes (Hospitalization)
  Sender: FDA-Public Use
  Company Number: US-ALEXION-A201100380

PATIENT
  Sex: Female

DRUGS (7)
  1. HYDROCHLOROTHIAZIDE [Concomitant]
     Indication: HYPERTENSION
     Dosage: UNK
  2. ARANESP [Concomitant]
     Dosage: ONCE Q. OTHER WEEK
  3. SOLIRIS [Suspect]
     Indication: PAROXYSMAL NOCTURNAL HAEMOGLOBINURIA
     Dosage: 900 MG, Q2W
     Route: 042
     Dates: start: 20070527
  4. OMEPRAZOLE [Concomitant]
  5. DESFERAL                           /00062903/ [Concomitant]
     Dosage: Q WEEK
  6. FOLIC ACID [Concomitant]
     Dosage: UNK
  7. LISINOPRIL [Concomitant]
     Indication: HYPERTENSION
     Dosage: UNK

REACTIONS (4)
  - CHROMATURIA [None]
  - TRANSFUSION [None]
  - COUGH [None]
  - FEBRILE NEUTROPENIA [None]
